FAERS Safety Report 4746814-X (Version None)
Quarter: 2005Q3

REPORT INFORMATION
  Report Type: 
  Country: None (occurrence: None)
  Receive Date: 20050817
  Receipt Date: 20050810
  Transmission Date: 20060218
  Serious: Yes (Life-Threatening, Hospitalization)
  Sender: FDA-Public Use
  Company Number: US-MERCK-0508USA01932

PATIENT
  Age: 43 Year
  Sex: Male

DRUGS (3)
  1. VIOXX [Suspect]
     Indication: TENSION HEADACHE
     Route: 048
     Dates: start: 19990101, end: 20040901
  2. VIOXX [Suspect]
     Indication: BACK PAIN
     Route: 048
     Dates: start: 19990101, end: 20040901
  3. IBUPROFEN [Concomitant]
     Route: 065

REACTIONS (15)
  - AMNESIA [None]
  - BLADDER DISORDER [None]
  - CEREBROVASCULAR ACCIDENT [None]
  - DEPRESSION [None]
  - ERECTILE DYSFUNCTION [None]
  - GALLBLADDER NON-FUNCTIONING [None]
  - HEADACHE [None]
  - MYOCARDIAL INFARCTION [None]
  - NEUROPATHY [None]
  - OBESITY [None]
  - OVERDOSE [None]
  - PAIN [None]
  - STRESS [None]
  - THROMBOSIS [None]
  - VISUAL DISTURBANCE [None]
